FAERS Safety Report 4349627-6 (Version None)
Quarter: 2004Q2

REPORT INFORMATION
  Report Type: 
  Country: None (occurrence: None)
  Receive Date: 20040427
  Receipt Date: 20030303
  Transmission Date: 20050107
  Serious: No
  Sender: FDA-Public Use
  Company Number: 000468

PATIENT

DRUGS (1)
  1. ZEVALIN [Suspect]
     Indication: NON-HODGKIN'S LYMPHOMA
     Dosage: UNK, SINGLE, RITUXAN DOSE 1, INTRAVENOUS SEE IMAGE
     Route: 042

REACTIONS (1)
  - PANCYTOPENIA [None]
